FAERS Safety Report 21410177 (Version 3)
Quarter: 2022Q4

REPORT INFORMATION
  Report Type: Report from Study
  Country: US (occurrence: None)
  Receive Date: 20221005
  Receipt Date: 20221020
  Transmission Date: 20230113
  Serious: Yes (Hospitalization)
  Sender: FDA-Public Use
  Company Number: US-ROCHE-3191344

PATIENT
  Age: 79 Year
  Sex: Female
  Weight: 70.8 kg

DRUGS (45)
  1. RITUXIMAB [Suspect]
     Active Substance: RITUXIMAB
     Indication: Follicular lymphoma
     Dosage: DATE OF LAST DOSE PRIOR TO EVENT: 14/JUN/2022
     Route: 041
     Dates: start: 20211229, end: 20220105
  2. RITUXIMAB [Suspect]
     Active Substance: RITUXIMAB
     Dosage: RE-PRIMING DAY 1
     Route: 041
     Dates: start: 20220209, end: 20220209
  3. RITUXIMAB [Suspect]
     Active Substance: RITUXIMAB
     Route: 041
     Dates: start: 20220309, end: 20220614
  4. EPCORITAMAB [Suspect]
     Active Substance: EPCORITAMAB
     Indication: Follicular lymphoma
     Dosage: PRIMING DOSE
     Route: 058
     Dates: start: 20211229, end: 20211229
  5. EPCORITAMAB [Suspect]
     Active Substance: EPCORITAMAB
     Dosage: INTERMEDIATE DOSE
     Route: 058
     Dates: start: 20220105, end: 20220105
  6. EPCORITAMAB [Suspect]
     Active Substance: EPCORITAMAB
     Dosage: RE-PRIMING DAY 1 (RPD1)
     Route: 058
     Dates: start: 20220209, end: 20220209
  7. EPCORITAMAB [Suspect]
     Active Substance: EPCORITAMAB
     Dosage: RE-PRIMING DAY 8 (RPD8)
     Route: 058
     Dates: start: 20220216, end: 20220216
  8. EPCORITAMAB [Suspect]
     Active Substance: EPCORITAMAB
     Dosage: FULL DOSE
     Route: 058
     Dates: start: 20220223, end: 20220412
  9. EPCORITAMAB [Suspect]
     Active Substance: EPCORITAMAB
     Dosage: FULL DOSE
     Route: 058
     Dates: start: 20220419, end: 20220614
  10. EPCORITAMAB [Suspect]
     Active Substance: EPCORITAMAB
     Dosage: RE-PRIMING DAY 1 (RPD1)
     Route: 058
     Dates: start: 20220802, end: 20220802
  11. EPCORITAMAB [Suspect]
     Active Substance: EPCORITAMAB
     Dosage: RE-PRIMING DAY 8 (RPD8)
     Route: 058
     Dates: start: 20220809, end: 20220809
  12. EPCORITAMAB [Suspect]
     Active Substance: EPCORITAMAB
     Dosage: FULL DOSE
     Route: 058
     Dates: start: 20220816
  13. LENALIDOMIDE [Suspect]
     Active Substance: LENALIDOMIDE
     Indication: Follicular lymphoma
     Dosage: RE-PRIMING DAY 1 (RPD1)
     Route: 048
     Dates: start: 20220209, end: 20220228
  14. LENALIDOMIDE [Suspect]
     Active Substance: LENALIDOMIDE
     Route: 048
     Dates: start: 20220309, end: 20220330
  15. LENALIDOMIDE [Suspect]
     Active Substance: LENALIDOMIDE
     Route: 048
     Dates: start: 20220419, end: 20220510
  16. LENALIDOMIDE [Suspect]
     Active Substance: LENALIDOMIDE
     Route: 048
     Dates: start: 20220517, end: 20220607
  17. LENALIDOMIDE [Suspect]
     Active Substance: LENALIDOMIDE
     Route: 048
     Dates: start: 20220614, end: 20220705
  18. LENALIDOMIDE [Suspect]
     Active Substance: LENALIDOMIDE
     Dosage: RE-PRIMING DAY 1 (RPD1)
     Route: 048
     Dates: start: 20220802, end: 20220809
  19. DIPHENHYDRAMINE [Concomitant]
     Active Substance: DIPHENHYDRAMINE
     Dates: start: 20220830, end: 20220830
  20. ACETAMINOPHEN [Concomitant]
     Active Substance: ACETAMINOPHEN
     Dates: start: 20220830, end: 20220830
  21. METHYLPREDNISOLONE SODIUM SUCCINATE [Concomitant]
     Active Substance: METHYLPREDNISOLONE SODIUM SUCCINATE
     Dates: start: 20220830, end: 20220830
  22. PREDNISONE [Concomitant]
     Active Substance: PREDNISONE
     Dates: start: 20220802, end: 20220826
  23. DOCUSATE SODIUM [Concomitant]
     Active Substance: DOCUSATE SODIUM
     Dates: start: 20220316
  24. FERRIC CARBOXYMALTOSE [Concomitant]
     Active Substance: FERRIC CARBOXYMALTOSE
  25. FERRIC CARBOXYMALTOSE [Concomitant]
     Active Substance: FERRIC CARBOXYMALTOSE
     Dates: start: 20220830, end: 20220830
  26. METOPROLOL SUCCINATE [Concomitant]
     Active Substance: METOPROLOL SUCCINATE
     Dates: start: 20220823
  27. MIDODRINE [Concomitant]
     Active Substance: MIDODRINE
     Dates: start: 20220823
  28. POLYETHYLENE GLYCOLS [Concomitant]
     Active Substance: POLYETHYLENE GLYCOLS
     Dates: start: 20220316
  29. SENNOSIDES [Concomitant]
     Active Substance: SENNOSIDES
     Dates: start: 20220316
  30. ACYCLOVIR [Concomitant]
     Active Substance: ACYCLOVIR
  31. ATORVASTATIN [Concomitant]
     Active Substance: ATORVASTATIN
  32. CEPHALEXIN [Concomitant]
     Active Substance: CEPHALEXIN
  33. CHLORHEXIDINE [Concomitant]
     Active Substance: CHLORHEXIDINE
  34. DEXTROSE [Concomitant]
     Active Substance: DEXTROSE
  35. FOSCARNET [Concomitant]
     Active Substance: FOSCARNET
  36. FUROSEMIDE [Concomitant]
     Active Substance: FUROSEMIDE
  37. GLIPIZIDE [Concomitant]
     Active Substance: GLIPIZIDE
  38. HYDROCORTISONE [Concomitant]
     Active Substance: HYDROCORTISONE
  39. LIDOCAINE [Concomitant]
     Active Substance: LIDOCAINE
  40. LISINOPRIL [Concomitant]
     Active Substance: LISINOPRIL
  41. MAGNESIUM OXIDE [Concomitant]
     Active Substance: MAGNESIUM OXIDE
  42. MAGNESIUM SULFATE [Concomitant]
     Active Substance: MAGNESIUM SULFATE
  43. PROPOFOL [Concomitant]
     Active Substance: PROPOFOL
  44. SITAGLIPTIN [Concomitant]
     Active Substance: SITAGLIPTIN
  45. SULFAMETHOXAZOLE\TRIMETHOPRIM [Concomitant]
     Active Substance: SULFAMETHOXAZOLE\TRIMETHOPRIM

REACTIONS (1)
  - Cytomegalovirus colitis [Not Recovered/Not Resolved]

NARRATIVE: CASE EVENT DATE: 20220909
